FAERS Safety Report 9966864 (Version 1)
Quarter: 2014Q1

REPORT INFORMATION
  Report Type: Report from Study
  Country: US (occurrence: US)
  Receive Date: 20140305
  Receipt Date: 20140305
  Transmission Date: 20141002
  Serious: No
  Sender: FDA-Public Use
  Company Number: US-ABBVIE-13P-163-1123278-00

PATIENT
  Age: 62 Year
  Sex: Female

DRUGS (10)
  1. HUMIRA [Suspect]
     Indication: PSORIATIC ARTHROPATHY
     Dates: start: 20130620
  2. DILAUDID [Concomitant]
     Indication: BACK PAIN
  3. BUPIVACAINE [Concomitant]
     Indication: BACK PAIN
     Route: 037
  4. MS CONTIN [Concomitant]
     Indication: BACK PAIN
  5. ROXICODONE [Concomitant]
     Indication: BACK PAIN
     Dosage: 30 MG UP TO FOUR TIMES DAILY
  6. BACLOFEN [Concomitant]
     Indication: MUSCLE SPASMS
  7. AMBIEN [Concomitant]
     Indication: INSOMNIA
  8. KLONOPIN [Concomitant]
     Indication: ANXIETY
  9. PRILOSEC [Concomitant]
     Indication: PSORIASIS
  10. PSORIASIS OINTMENT [Concomitant]
     Indication: PSORIASIS

REACTIONS (1)
  - Injection site pain [Recovered/Resolved]
